FAERS Safety Report 12393660 (Version 1)
Quarter: 2016Q2

REPORT INFORMATION
  Report Type: Spontaneous
  Country: JP (occurrence: JP)
  Receive Date: 20160523
  Receipt Date: 20160523
  Transmission Date: 20160815
  Serious: Yes (Hospitalization, Disabling)
  Sender: FDA-Public Use
  Company Number: JP-BAYER-2016-092506

PATIENT
  Age: 62 Year
  Sex: Male
  Weight: 61 kg

DRUGS (3)
  1. WARFARIN POTASSIUM [Interacting]
     Active Substance: WARFARIN POTASSIUM
     Route: 048
  2. ACETYLSALICYLIC ACID({=100 MG) [Suspect]
     Active Substance: ASPIRIN
     Dosage: UNK
     Route: 048
  3. TICLOPIDINE HYDROCHLORIDE. [Interacting]
     Active Substance: TICLOPIDINE HYDROCHLORIDE
     Route: 048

REACTIONS (5)
  - Subarachnoid haemorrhage [None]
  - Labelled drug-drug interaction medication error [None]
  - Moyamoya disease [None]
  - Drug administration error [None]
  - Cerebral infarction [None]

NARRATIVE: CASE EVENT DATE: 2007
